FAERS Safety Report 7709014-7 (Version None)
Quarter: 2011Q3

REPORT INFORMATION
  Report Type: 
  Country: None (occurrence: None)
  Receive Date: 20110825
  Receipt Date: 20110811
  Transmission Date: 20111222
  Serious: Yes (Death, Other)
  Sender: FDA-Public Use
  Company Number: DE-GENENTECH-261765

PATIENT

DRUGS (5)
  1. LUCENTIS [Suspect]
     Indication: MACULAR DEGENERATION
     Route: 031
  2. ARUTIMOL [Suspect]
     Indication: OCULAR HYPERTENSION
  3. VITALUX PLUS [Suspect]
     Indication: MACULAR DEGENERATION
  4. ANTIBIOTICS (NOT SPECIFIED) [Suspect]
     Indication: BRONCHITIS
  5. TRAVATAN [Concomitant]
     Indication: PRODUCT USED FOR UNKNOWN INDICATION
     Dosage: UNK
     Dates: start: 20080514, end: 20080519

REACTIONS (4)
  - CONDITION AGGRAVATED [None]
  - SUDDEN CARDIAC DEATH [None]
  - BRONCHITIS [None]
  - ASPIRATION [None]
